FAERS Safety Report 19149717 (Version 1)
Quarter: 2021Q2

REPORT INFORMATION
  Report Type: Spontaneous
  Country: NL (occurrence: NL)
  Receive Date: 20210417
  Receipt Date: 20210417
  Transmission Date: 20210717
  Serious: Yes (Death, Hospitalization)
  Sender: FDA-Public Use
  Company Number: NL-LUPIN PHARMACEUTICALS INC.-2021-04764

PATIENT
  Age: 6 Year
  Sex: Female

DRUGS (5)
  1. AZATHIOPRINE. [Suspect]
     Active Substance: AZATHIOPRINE
     Indication: RESPIRATORY FAILURE
     Dosage: UNK
     Route: 065
  2. CYCLOPHOSPHAMIDE. [Suspect]
     Active Substance: CYCLOPHOSPHAMIDE
     Indication: RESPIRATORY FAILURE
     Dosage: UNK
     Route: 065
  3. OXYGEN. [Suspect]
     Active Substance: OXYGEN
     Indication: RESPIRATORY FAILURE
     Dosage: UNK
     Route: 065
  4. METHYLPREDNISOLONE. [Suspect]
     Active Substance: METHYLPREDNISOLONE
     Indication: RESPIRATORY FAILURE
     Dosage: UNK, PULSE THERAPY
     Route: 065
  5. HYDROXYCHLOROQUINE [Suspect]
     Active Substance: HYDROXYCHLOROQUINE
     Indication: RESPIRATORY FAILURE
     Dosage: UNK
     Route: 065

REACTIONS (1)
  - Drug ineffective [Fatal]
